APPROVED DRUG PRODUCT: TESTOSTERONE ENANTHATE
Active Ingredient: TESTOSTERONE ENANTHATE
Strength: 200MG/ML
Dosage Form/Route: INJECTABLE;INJECTION
Application: A085598 | Product #001
Applicant: WATSON PHARMACEUTICALS INC
Approved: Approved Prior to Jan 1, 1982 | RLD: No | RS: No | Type: DISCN